FAERS Safety Report 23664905 (Version 1)
Quarter: 2024Q1

REPORT INFORMATION
  Report Type: Report from Study
  Country: US (occurrence: US)
  Receive Date: 20240322
  Receipt Date: 20240322
  Transmission Date: 20240410
  Serious: Yes (Hospitalization)
  Sender: FDA-Public Use
  Company Number: US-Eisai-EC-2024-160443

PATIENT
  Age: 75 Year
  Sex: Male

DRUGS (3)
  1. LENVIMA [Suspect]
     Active Substance: LENVATINIB
     Indication: Papillary thyroid cancer
     Route: 048
     Dates: start: 202401, end: 20240306
  2. AMLODIPINE [Concomitant]
     Active Substance: AMLODIPINE BESYLATE
     Dosage: UNKNOWN DOSE
  3. AMLODIPINE [Concomitant]
     Active Substance: AMLODIPINE BESYLATE
     Dosage: UNKNOWN DOSE

REACTIONS (11)
  - Renal impairment [Unknown]
  - Weight increased [Unknown]
  - Generalised oedema [Unknown]
  - Loss of personal independence in daily activities [Unknown]
  - Dysstasia [Unknown]
  - Fatigue [Not Recovered/Not Resolved]
  - Penile swelling [Unknown]
  - Blood pressure increased [Not Recovered/Not Resolved]
  - Urinary tract obstruction [Unknown]
  - Dysuria [Unknown]
  - Headache [Unknown]

NARRATIVE: CASE EVENT DATE: 20240101
